FAERS Safety Report 10443996 (Version 1)
Quarter: 2014Q3

REPORT INFORMATION
  Report Type: Spontaneous
  Country: US (occurrence: None)
  Receive Date: 20140909
  Receipt Date: 20140909
  Transmission Date: 20150326
  Serious: No
  Sender: FDA-Public Use
  Company Number: None

PATIENT
  Age: 63 Year
  Sex: Male
  Weight: 70.7 kg

DRUGS (1)
  1. PROTAMINE SULFATE. [Suspect]
     Active Substance: PROTAMINE SULFATE
     Indication: SURGERY
     Route: 042
     Dates: start: 20140625, end: 20140625

REACTIONS (4)
  - Dyspnoea [None]
  - Respiratory distress [None]
  - Rash [None]
  - Bronchospasm [None]

NARRATIVE: CASE EVENT DATE: 20140625
